FAERS Safety Report 5548194-9 (Version None)
Quarter: 2007Q4

REPORT INFORMATION
  Report Type: 
  Country: None (occurrence: None)
  Receive Date: 20071206
  Receipt Date: 20071123
  Transmission Date: 20080405
  Serious: Yes (Hospitalization)
  Sender: FDA-Public Use
  Company Number: DSA_30936_2007

PATIENT
  Age: 83 Year
  Sex: Male

DRUGS (6)
  1. ENALAPRIL MALEATE [Suspect]
     Indication: HYPERTENSION
     Dosage: DF ORAL
     Route: 048
     Dates: end: 20070514
  2. ALTIZIDE W/SPIRONOLACTONE (ALTHIAZIDE SPIRONOLACTONE) [Suspect]
     Indication: HYPERTENSION
     Dosage: DF ORAL
     Route: 048
     Dates: end: 20070510
  3. DIGOXIN [Concomitant]
  4. FLUINDIONE [Concomitant]
  5. FUROSEMIDE [Concomitant]
  6. NICORANDIL [Concomitant]

REACTIONS (4)
  - DRUG INTERACTION [None]
  - FALL [None]
  - HYPERKALAEMIA [None]
  - MALAISE [None]
